FAERS Safety Report 9106689 (Version 1)
Quarter: 2013Q1

REPORT INFORMATION
  Report Type: Spontaneous
  Country: GB (occurrence: GB)
  Receive Date: 20130221
  Receipt Date: 20130221
  Transmission Date: 20140127
  Serious: Yes (Death, Other)
  Sender: FDA-Public Use
  Company Number: GB-ROXANE LABORATORIES, INC.-2013-RO-00259RO

PATIENT
  Age: 1 Hour
  Sex: Male
  Weight: 2.1 kg

DRUGS (6)
  1. DIGOXIN [Suspect]
     Indication: TACHYCARDIA FOETAL
     Route: 064
  2. DIGOXIN [Suspect]
     Dosage: 750 MCG
     Route: 064
  3. FLECAINIDE [Suspect]
     Indication: TACHYCARDIA FOETAL
     Dosage: 300 MG
     Route: 064
  4. AMIODARONE [Suspect]
     Indication: SUPRAVENTRICULAR TACHYCARDIA
     Route: 042
  5. SOTALOL [Suspect]
     Indication: SUPRAVENTRICULAR TACHYCARDIA
  6. ADENOSINE [Suspect]
     Indication: SUPRAVENTRICULAR TACHYCARDIA

REACTIONS (3)
  - Respiratory distress [Fatal]
  - No therapeutic response [Unknown]
  - Supraventricular tachycardia [Recovered/Resolved]
